FAERS Safety Report 9493848 (Version 2)
Quarter: 2013Q3

REPORT INFORMATION
  Report Type: Spontaneous
  Country: DE (occurrence: DE)
  Receive Date: 20130902
  Receipt Date: 20130902
  Transmission Date: 20140515
  Serious: Yes (Hospitalization)
  Sender: FDA-Public Use
  Company Number: DE-UCBSA-093328

PATIENT
  Age: 53 Year
  Sex: Female

DRUGS (4)
  1. VIMPAT [Suspect]
     Indication: PARTIAL SEIZURES
     Route: 048
     Dates: start: 201304, end: 20130704
  2. VALPROAT RETARD [Concomitant]
     Indication: EPILEPSY
     Route: 048
  3. RISPERDAL [Concomitant]
     Indication: PSYCHOTIC DISORDER
     Route: 048
  4. PANTOZOL [Concomitant]
     Indication: GASTRITIS
     Route: 048

REACTIONS (3)
  - Grand mal convulsion [Recovering/Resolving]
  - Complex partial seizures [Recovering/Resolving]
  - Overdose [Unknown]
